FAERS Safety Report 5106436-8 (Version None)
Quarter: 2006Q3

REPORT INFORMATION
  Report Type: 
  Country: None (occurrence: None)
  Receive Date: 20060918
  Receipt Date: 20060511
  Transmission Date: 20061208
  Serious: Yes (Hospitalization)
  Sender: FDA-Public Use
  Company Number: NL-ROCHE-447948

PATIENT
  Age: 64 Year
  Sex: Male

DRUGS (8)
  1. CAPECITABINE [Suspect]
     Dosage: GIVEN TWICE DAILY ON DAYS ONE TO FOURTEEN OF A 21-DAY-CYCLE.
     Route: 048
     Dates: start: 20060502
  2. AVASTIN [Suspect]
     Dosage: GIVEN ON DAY ONE OF A THREE-WEEK-CYCLE.
     Route: 042
     Dates: start: 20060502
  3. OXALIPLATIN [Suspect]
     Dosage: GIVEN ON DAY ONE OF A THREE-WEEK-CYCLE.
     Route: 042
     Dates: start: 20060502
  4. METOCLOPRAMIDE [Concomitant]
  5. ACETASOL [Concomitant]
  6. UNSPECIFIED DRUG [Concomitant]
     Dosage: ILLEGIBLE (REPORTED AS MONO ...).
  7. ACCUPRIL [Concomitant]
  8. SIMVASTATIN [Concomitant]

REACTIONS (5)
  - ASTHENIA [None]
  - DYSPEPSIA [None]
  - HICCUPS [None]
  - NAUSEA [None]
  - VOMITING [None]
